FAERS Safety Report 24816320 (Version 2)
Quarter: 2025Q1

REPORT INFORMATION
  Report Type: Spontaneous
  Country: US (occurrence: US)
  Receive Date: 20250107
  Receipt Date: 20250113
  Transmission Date: 20250409
  Serious: Yes (Hospitalization)
  Sender: PFIZER
  Company Number: US-PFIZER INC-202500002693

PATIENT
  Age: 65 Year
  Sex: Female
  Weight: 88.2 kg

DRUGS (8)
  1. IBRANCE [Suspect]
     Active Substance: PALBOCICLIB
     Indication: Breast cancer female
     Route: 048
     Dates: start: 20180223
  2. IBRANCE [Suspect]
     Active Substance: PALBOCICLIB
     Route: 048
     Dates: start: 20200520
  3. BISOPROLOL FUMARATE [Concomitant]
     Active Substance: BISOPROLOL FUMARATE
  4. ELIQUIS [Concomitant]
     Active Substance: APIXABAN
  5. ANASTROZOLE [Concomitant]
     Active Substance: ANASTROZOLE
  6. LETROZOLE [Concomitant]
     Active Substance: LETROZOLE
  7. PREDNISONE [Concomitant]
     Active Substance: PREDNISONE
  8. BENZONATATE [Concomitant]
     Active Substance: BENZONATATE

REACTIONS (1)
  - Influenza [Unknown]
